FAERS Safety Report 10373676 (Version 1)
Quarter: 2014Q1

REPORT INFORMATION
  Report Type: Spontaneous
  Country: US (occurrence: None)
  Receive Date: 20140306
  Receipt Date: 20140306
  Transmission Date: 20141002
  Serious: Yes (Other)
  Sender: FDA-Public Use
  Company Number: 163-21880-13050808

PATIENT
  Sex: Female
  Weight: 90.72 kg

DRUGS (1)
  1. REVLIMID (LENALIDOMIDE) (CAPSULES) [Suspect]
     Indication: PLASMA CELL MYELOMA
     Dosage: 14 IN 14
     Route: 048
     Dates: start: 201109

REACTIONS (3)
  - Gastrointestinal haemorrhage [None]
  - Bronchitis [None]
  - Conjunctivitis [None]
